FAERS Safety Report 8888392 (Version 4)
Quarter: 2013Q2

REPORT INFORMATION
  Report Type: Spontaneous
  Country: US (occurrence: US)
  Receive Date: 20121106
  Receipt Date: 20130531
  Transmission Date: 20140414
  Serious: Yes (Hospitalization, Other)
  Sender: FDA-Public Use
  Company Number: US-JNJFOC-2004093832

PATIENT
  Age: 9 Year
  Sex: Female

DRUGS (5)
  1. CHILDREN^S MOTRIN [Suspect]
     Indication: PYREXIA
     Route: 048
     Dates: start: 19960528
  2. CHILDREN^S MOTRIN [Suspect]
     Indication: ABDOMINAL PAIN UPPER
     Route: 048
     Dates: start: 19960528
  3. CHILDREN^S MOTRIN [Suspect]
     Indication: HEADACHE
     Route: 048
     Dates: start: 19960528
  4. PARACETAMOL [Suspect]
     Route: 048
  5. PARACETAMOL [Suspect]
     Indication: HEADACHE
     Dosage: DAILY DOSE TEXT: 2 DOSES
     Route: 048

REACTIONS (15)
  - Hepatosplenomegaly [Unknown]
  - Rash maculo-papular [Unknown]
  - Toxic epidermal necrolysis [Unknown]
  - Vanishing bile duct syndrome [Recovered/Resolved with Sequelae]
  - Lymphadenopathy [Unknown]
  - Pancreatitis [Recovered/Resolved]
  - Hepatic cirrhosis [Not Recovered/Not Resolved]
  - Hepatitis [Unknown]
  - Stevens-Johnson syndrome [Recovered/Resolved with Sequelae]
  - Hepatic artery occlusion [Recovered/Resolved with Sequelae]
  - Decreased appetite [Unknown]
  - Xanthoma [Unknown]
  - Conjunctivitis [Unknown]
  - Faeces pale [Not Recovered/Not Resolved]
  - Eye pain [Unknown]
